FAERS Safety Report 5352835-9 (Version None)
Quarter: 2007Q2

REPORT INFORMATION
  Report Type: 
  Country: None (occurrence: None)
  Receive Date: 20070611
  Receipt Date: 20070530
  Transmission Date: 20071010
  Serious: Yes (Hospitalization, Other)
  Sender: FDA-Public Use
  Company Number: US-ELI_LILLY_AND_COMPANY-US200705007508

PATIENT
  Age: 40 Year
  Sex: Female
  Weight: 93.877 kg

DRUGS (15)
  1. ZYPREXA [Suspect]
     Indication: MENTAL DISORDER
     Dosage: 25 MG, UNK
  2. ZYPREXA [Suspect]
     Dosage: 10 MG, DAILY (1/D)
  3. CYMBALTA [Concomitant]
     Indication: PAIN
     Dosage: 30 MG, DAILY (1/D)
     Dates: start: 20070106
  4. LITHIUM CARBONATE [Concomitant]
     Dates: end: 20060101
  5. REMERON [Concomitant]
  6. CLONOPIN [Concomitant]
  7. MOBAN [Concomitant]
  8. TRAZODONE HCL [Concomitant]
  9. ASPIRIN [Concomitant]
  10. SYNTHROID [Concomitant]
  11. ZOCOR [Concomitant]
  12. LACTULOSE [Concomitant]
  13. COLACE [Concomitant]
  14. MIRALAX [Concomitant]
  15. AXID [Concomitant]
     Indication: STOMACH DISCOMFORT

REACTIONS (15)
  - ABDOMINAL DISTENSION [None]
  - BACK PAIN [None]
  - BLOOD GLUCOSE INCREASED [None]
  - CONFUSIONAL STATE [None]
  - DISORIENTATION [None]
  - HALLUCINATION [None]
  - INCREASED APPETITE [None]
  - LIPASE INCREASED [None]
  - PANCREATITIS [None]
  - PRESCRIBED OVERDOSE [None]
  - REPETITIVE SPEECH [None]
  - SMOKER [None]
  - VOMITING [None]
  - WEIGHT DECREASED [None]
  - WEIGHT INCREASED [None]
